FAERS Safety Report 21652561 (Version 1)
Quarter: 2022Q4

REPORT INFORMATION
  Report Type: Spontaneous
  Country: NO (occurrence: NO)
  Receive Date: 20221128
  Receipt Date: 20221128
  Transmission Date: 20230113
  Serious: Yes (Hospitalization)
  Sender: FDA-Public Use
  Company Number: NO-PFIZER INC-PV202200112140

PATIENT
  Age: 71 Year
  Sex: Female

DRUGS (2)
  1. INFLIXIMAB [Suspect]
     Active Substance: INFLIXIMAB
     Indication: Rheumatoid arthritis
     Dosage: 200 MG
     Route: 065
     Dates: start: 20220920, end: 20221006
  2. PANTOPRAZOLE SODIUM [Concomitant]
     Active Substance: PANTOPRAZOLE SODIUM
     Dosage: 20 MG
     Route: 065

REACTIONS (3)
  - Mouth ulceration [Recovering/Resolving]
  - Arthralgia [Recovering/Resolving]
  - Infusion related reaction [Recovering/Resolving]
